FAERS Safety Report 6609158-7 (Version None)
Quarter: 2010Q1

REPORT INFORMATION
  Report Type: 
  Country: None (occurrence: None)
  Receive Date: 20100226
  Receipt Date: 20100226
  Transmission Date: 20100710
  Serious: No
  Sender: FDA-Public Use
  Company Number: None

PATIENT
  Age: 45 Year
  Sex: Female
  Weight: 113.3993 kg

DRUGS (5)
  1. LIBRIUM [Suspect]
  2. ASPIRIN [Concomitant]
  3. BUSPIRONE HCL [Concomitant]
  4. QUETIAPINE [Concomitant]
  5. OLANZAPINE IM [Concomitant]

REACTIONS (1)
  - RASH [None]
